FAERS Safety Report 23594453 (Version 1)
Quarter: 2024Q1

REPORT INFORMATION
  Report Type: Spontaneous
  Country: US (occurrence: US)
  Receive Date: 20240305
  Receipt Date: 20240305
  Transmission Date: 20240409
  Serious: No
  Sender: FDA-Public Use
  Company Number: US-GSK-US2024024465

PATIENT
  Age: 8 Decade

DRUGS (2)
  1. OJJAARA [Suspect]
     Active Substance: MOMELOTINIB DIHYDROCHLORIDE MONOHYDRATE
     Indication: Myelofibrosis
     Dosage: 100 MG, QD
  2. OJJAARA [Suspect]
     Active Substance: MOMELOTINIB DIHYDROCHLORIDE MONOHYDRATE
     Dosage: UNK, (DOSE DECREASED)

REACTIONS (2)
  - Haemoglobin abnormal [Recovering/Resolving]
  - Product use issue [Unknown]
